FAERS Safety Report 9282880 (Version 1)
Quarter: 2013Q2

REPORT INFORMATION
  Report Type: Spontaneous
  Country: US (occurrence: US)
  Receive Date: 20130510
  Receipt Date: 20130510
  Transmission Date: 20140414
  Serious: Yes (Other)
  Sender: FDA-Public Use
  Company Number: US-BRISTOL-MYERS SQUIBB COMPANY-18858282

PATIENT
  Age: 67 Year
  Sex: Female
  Weight: 80.27 kg

DRUGS (3)
  1. BYETTA [Suspect]
     Indication: TYPE 2 DIABETES MELLITUS
     Dosage: 5MCG BID FOR THREE WEEKS,DOSE INCREASED:10MCG BID THREE WEEKS AGO
  2. LANTUS [Concomitant]
  3. METFORMIN [Concomitant]

REACTIONS (5)
  - Gallbladder disorder [Unknown]
  - Eructation [Not Recovered/Not Resolved]
  - Gastrooesophageal reflux disease [Not Recovered/Not Resolved]
  - Weight decreased [Unknown]
  - Weight increased [Unknown]
